FAERS Safety Report 13613012 (Version 2)
Quarter: 2017Q2

REPORT INFORMATION
  Report Type: Report from Study
  Country: US (occurrence: US)
  Receive Date: 20170605
  Receipt Date: 20170609
  Transmission Date: 20170830
  Serious: Yes (Hospitalization, Other)
  Sender: FDA-Public Use
  Company Number: US-GILEAD-2017-0271006

PATIENT
  Age: 58 Year
  Sex: Male

DRUGS (1)
  1. LEDIPASVIR/SOFOSBUVIR [Suspect]
     Active Substance: LEDIPASVIR\SOFOSBUVIR
     Indication: CHRONIC HEPATITIS C
     Dosage: 1 DF, QD
     Route: 048
     Dates: start: 20170316

REACTIONS (10)
  - Renal pain [Unknown]
  - Visual impairment [Not Recovered/Not Resolved]
  - Road traffic accident [Unknown]
  - Insomnia [Unknown]
  - Local swelling [Unknown]
  - Thermal burn [Unknown]
  - Loss of consciousness [Unknown]
  - Constipation [Unknown]
  - Pain [Unknown]
  - Chest pain [Unknown]

NARRATIVE: CASE EVENT DATE: 201704
